FAERS Safety Report 8278956-9 (Version None)
Quarter: 2012Q2

REPORT INFORMATION
  Report Type: 
  Country: None (occurrence: None)
  Receive Date: 20120412
  Receipt Date: 20111019
  Transmission Date: 20120825
  Serious: No
  Sender: FDA-Public Use
  Company Number: US-ASTRAZENECA-2011SE50127

PATIENT
  Age: 54 Year
  Sex: Female

DRUGS (4)
  1. NEXIUM [Suspect]
     Route: 048
  2. PRILOSEC [Suspect]
     Route: 048
  3. VIMOVO [Suspect]
     Dosage: 500 MG/ 20MG, DAILY
     Route: 048
  4. TYLENOL (CAPLET) [Concomitant]

REACTIONS (8)
  - PAIN IN EXTREMITY [None]
  - MALAISE [None]
  - ARTHRITIS [None]
  - DRUG DOSE OMISSION [None]
  - PAIN [None]
  - DECREASED APPETITE [None]
  - PYREXIA [None]
  - VOMITING [None]
